FAERS Safety Report 21992066 (Version 5)
Quarter: 2024Q3

REPORT INFORMATION
  Report Type: Spontaneous
  Country: US (occurrence: US)
  Receive Date: 20230214
  Receipt Date: 20240730
  Transmission Date: 20241016
  Serious: Yes (Other)
  Sender: AMGEN
  Company Number: US-AMGEN-USASP2023024466

PATIENT
  Sex: Female

DRUGS (14)
  1. OTEZLA [Suspect]
     Active Substance: APREMILAST
     Indication: Psoriatic arthropathy
     Dosage: 30 MILLIGRAM, BID
     Route: 048
     Dates: start: 20171019
  2. ENBREL [Suspect]
     Active Substance: BENZYL ALCOHOL\ETANERCEPT
     Indication: Product used for unknown indication
     Dosage: 50 MILLIGRAM PER MICROLITER
     Route: 065
  3. CYANOCOBALAMIN [Concomitant]
     Active Substance: CYANOCOBALAMIN
     Dosage: 1000 MICROGRAM
  4. ESTRADIOL [Concomitant]
     Active Substance: ESTRADIOL
     Dosage: 0.5 MILLIGRAM
  5. FAMOTIDINE [Concomitant]
     Active Substance: FAMOTIDINE
     Dosage: 20MG/2ML
  6. FOLIC ACID [Concomitant]
     Active Substance: FOLIC ACID
     Dosage: 1 MILLIGRAM
  7. METHOTREXATE [Concomitant]
     Active Substance: METHOTREXATE
     Dosage: 50MG/2ML
  8. NORTRIPTYLINE [Concomitant]
     Active Substance: NORTRIPTYLINE
     Dosage: 10MG AND 25MG
  9. PREGABALIN [Concomitant]
     Active Substance: PREGABALIN
     Dosage: 50 MILLIGRAM
  10. PREMARIN [Concomitant]
     Active Substance: ESTROGENS, CONJUGATED
     Dosage: INJECTION 25MG AND TABLET 0.3MG
  11. TRAZODONE [Concomitant]
     Active Substance: TRAZODONE HYDROCHLORIDE
     Dosage: 50 MILLIGRAM
  12. VALACYCLOVIR [Concomitant]
     Active Substance: VALACYCLOVIR HYDROCHLORIDE
     Dosage: 500 MILLIGRAM
  13. ERYTHROMYCIN [Concomitant]
     Active Substance: ERYTHROMYCIN
     Dosage: 5MG/G
  14. Triamcinolon [Concomitant]

REACTIONS (3)
  - Psoriatic arthropathy [Not Recovered/Not Resolved]
  - Diarrhoea [Unknown]
  - Drug hypersensitivity [Unknown]
